FAERS Safety Report 5534246-6 (Version None)
Quarter: 2007Q4

REPORT INFORMATION
  Report Type: 
  Country: None (occurrence: None)
  Receive Date: 20071205
  Receipt Date: 20071121
  Transmission Date: 20080405
  Serious: Yes (Hospitalization)
  Sender: FDA-Public Use
  Company Number: US-ELI_LILLY_AND_COMPANY-US200711004998

PATIENT
  Age: 64 Year
  Sex: Male

DRUGS (10)
  1. ZYPREXA [Suspect]
     Indication: SCHIZOPHRENIA
     Dosage: 60 MG, UNK
     Route: 048
     Dates: start: 20070901
  2. LORAZEPAM [Concomitant]
  3. DIVALPROEX SODIUM [Concomitant]
  4. FLUPHENAZINE [Concomitant]
  5. SERTRALINE [Concomitant]
  6. SIMVASTATIN [Concomitant]
  7. VITAMIN CAP [Concomitant]
  8. VITAMIN D [Concomitant]
  9. MOXIFLOXACIN HCL [Concomitant]
  10. BENZTROPINE MESYLATE [Concomitant]

REACTIONS (2)
  - CELLULITIS [None]
  - DRUG INEFFECTIVE [None]
